FAERS Safety Report 20326609 (Version 3)
Quarter: 2022Q4

REPORT INFORMATION
  Report Type: Spontaneous
  Country: US (occurrence: US)
  Receive Date: 20220112
  Receipt Date: 20221204
  Transmission Date: 20230112
  Serious: No
  Sender: FDA-Public Use
  Company Number: US-LUPIN PHARMACEUTICALS INC.-2021-26573

PATIENT

DRUGS (1)
  1. ALBUTEROL SULFATE [Suspect]
     Active Substance: ALBUTEROL SULFATE
     Indication: Product used for unknown indication
     Dosage: UNK (: 2 PUFFS BY MOUTH EVERY 4 HOURS AS NEEDED)
     Dates: start: 20211223

REACTIONS (1)
  - Device ineffective [Unknown]

NARRATIVE: CASE EVENT DATE: 20211201
